FAERS Safety Report 10698888 (Version 1)
Quarter: 2015Q1

REPORT INFORMATION
  Report Type: Report from Study
  Country: US (occurrence: US)
  Receive Date: 20150108
  Receipt Date: 20150108
  Transmission Date: 20150721
  Serious: Yes (Hospitalization)
  Sender: FDA-Public Use
  Company Number: US-EMD SERONO-E2B_80002160

PATIENT
  Sex: Female

DRUGS (1)
  1. REBIF [Suspect]
     Active Substance: INTERFERON BETA-1A
     Indication: PRODUCT USED FOR UNKNOWN INDICATION
     Route: 058
     Dates: start: 20140731

REACTIONS (5)
  - Myocardial infarction [Unknown]
  - Unresponsive to stimuli [Unknown]
  - Trigeminal neuralgia [Unknown]
  - Fall [Unknown]
  - Blood pressure decreased [Unknown]
